FAERS Safety Report 21642247 (Version 1)
Quarter: 2022Q4

REPORT INFORMATION
  Report Type: Report from Study
  Country: AR (occurrence: AR)
  Receive Date: 20221125
  Receipt Date: 20221125
  Transmission Date: 20230112
  Serious: Yes (Other)
  Sender: FDA-Public Use
  Company Number: AR-ABBVIE-4212951

PATIENT
  Age: 29 Year
  Sex: Male

DRUGS (1)
  1. HUMIRA [Suspect]
     Active Substance: ADALIMUMAB
     Indication: Ankylosing spondylitis
     Dosage: STRENGTH: 40 MG
     Route: 058
     Dates: start: 20220215

REACTIONS (3)
  - Haemorrhoidal haemorrhage [Recovering/Resolving]
  - Haemorrhoids [Unknown]
  - Asthenia [Unknown]

NARRATIVE: CASE EVENT DATE: 20221112
